FAERS Safety Report 9714525 (Version 2)
Quarter: 2014Q1

REPORT INFORMATION
  Report Type: Spontaneous
  Country: US (occurrence: US)
  Receive Date: 20131126
  Receipt Date: 20140317
  Transmission Date: 20141002
  Serious: Yes (Other)
  Sender: FDA-Public Use
  Company Number: US-009507513-1311USA008377

PATIENT
  Age: 35 Year
  Sex: Female

DRUGS (5)
  1. SINGULAIR [Suspect]
     Indication: PRODUCT USED FOR UNKNOWN INDICATION
     Dosage: 10 MG, QD
     Route: 048
  2. TOPAMAX [Suspect]
     Indication: BIPOLAR DISORDER
     Route: 048
  3. TOPAMAX [Suspect]
     Dosage: 100 MG, UNK
     Route: 048
     Dates: start: 20040218, end: 20120714
  4. KLONOPIN [Suspect]
     Indication: DEPRESSION
     Route: 048
  5. Z-PAK [Suspect]
     Indication: RESPIRATORY TRACT CONGESTION
     Route: 065

REACTIONS (7)
  - Foetal death [Unknown]
  - Oligohydramnios [Unknown]
  - Stress [Unknown]
  - Exposure during pregnancy [Unknown]
  - Anxiety [Unknown]
  - Depression [Unknown]
  - Insomnia [Unknown]
